FAERS Safety Report 8818401 (Version 1)
Quarter: 2012Q4

REPORT INFORMATION
  Report Type: 
  Country: US (occurrence: US)
  Receive Date: 20121001
  Receipt Date: 20121001
  Transmission Date: 20130627
  Serious: No
  Sender: FDA-Public Use
  Company Number: US-SANOFI-AVENTIS-2012SA015788

PATIENT
  Age: 74 Year
  Sex: Male
  Weight: 92 kg

DRUGS (3)
  1. ELIGARD [Suspect]
     Indication: PROSTATE CANCER
     Route: 065
     Dates: start: 201108, end: 201108
  2. ALL OTHER THERAPEUTIC PRODUCTS [Concomitant]
  3. TAMSULOSIN [Concomitant]

REACTIONS (1)
  - Semen volume decreased [Not Recovered/Not Resolved]
